FAERS Safety Report 9231031 (Version 3)
Quarter: 2013Q2

REPORT INFORMATION
  Report Type: Spontaneous
  Country: US (occurrence: US)
  Receive Date: 20130415
  Receipt Date: 20130626
  Transmission Date: 20140414
  Serious: Yes (Death, Hospitalization, Other)
  Sender: FDA-Public Use
  Company Number: US-GILEAD-2013-0073495

PATIENT
  Age: 56 Year
  Sex: Female

DRUGS (8)
  1. LETAIRIS [Suspect]
     Indication: PULMONARY HYPERTENSION
     Dosage: 10 MG, UNK
     Dates: start: 20110802
  2. LETAIRIS [Suspect]
     Indication: SYSTEMIC LUPUS ERYTHEMATOSUS
  3. LETAIRIS [Suspect]
     Indication: ANTIPHOSPHOLIPID SYNDROME
  4. PLAQUENIL                          /00072602/ [Concomitant]
  5. PREDNISONE [Concomitant]
  6. ALBUTEROL                          /00139501/ [Concomitant]
  7. LISINOPRIL [Concomitant]
  8. COZAAR [Concomitant]

REACTIONS (4)
  - Respiratory failure [Fatal]
  - Renal failure [Fatal]
  - Lupus pneumonitis [Fatal]
  - Sinusitis [Unknown]
